FAERS Safety Report 18029500 (Version 1)
Quarter: 2020Q3

REPORT INFORMATION
  Report Type: Spontaneous
  Country: US (occurrence: US)
  Receive Date: 20200715
  Receipt Date: 20200715
  Transmission Date: 20201103
  Serious: Yes (Death)
  Sender: FDA-Public Use
  Company Number: None

PATIENT
  Age: 80 Year
  Sex: Male
  Weight: 101 kg

DRUGS (9)
  1. APAP?CODEINE [Concomitant]
     Dates: end: 20200709
  2. CEFEPIME [Concomitant]
     Active Substance: CEFEPIME HYDROCHLORIDE
     Dates: end: 20200708
  3. VANCOMYCIN [Concomitant]
     Active Substance: VANCOMYCIN
     Dates: end: 20200708
  4. BENZONATATE. [Concomitant]
     Active Substance: BENZONATATE
     Dates: start: 20200709, end: 20200709
  5. APIXABAN [Concomitant]
     Active Substance: APIXABAN
     Dates: start: 20200708, end: 20200709
  6. DEXAMETHASONE. [Concomitant]
     Active Substance: DEXAMETHASONE
     Dates: start: 20200708, end: 20200708
  7. DOXYCYCLINE. [Concomitant]
     Active Substance: DOXYCYCLINE
     Dates: start: 20200708, end: 20200709
  8. REMDESIVIR. [Suspect]
     Active Substance: REMDESIVIR
  9. PANTOPRAZOLE [Concomitant]
     Active Substance: PANTOPRAZOLE
     Dates: start: 20200708, end: 20200709

REACTIONS (2)
  - Unresponsive to stimuli [None]
  - Cardio-respiratory arrest [None]

NARRATIVE: CASE EVENT DATE: 20200709
